FAERS Safety Report 8779853 (Version 2)
Quarter: 2015Q3

REPORT INFORMATION
  Report Type: Report from Study
  Country: US (occurrence: US)
  Receive Date: 20120912
  Receipt Date: 20150721
  Transmission Date: 20151125
  Serious: Yes (Death, Other)
  Sender: FDA-Public Use
  Company Number: US-ROCHE-1103780

PATIENT
  Age: 62 Year
  Sex: Female
  Weight: 68 kg

DRUGS (71)
  1. ERBITUX [Suspect]
     Active Substance: CETUXIMAB
     Route: 042
  2. CARBOPLATIN. [Concomitant]
     Active Substance: CARBOPLATIN
     Route: 065
     Dates: end: 200703
  3. ALIMTA [Concomitant]
     Active Substance: PEMETREXED DISODIUM
  4. GEMZAR [Concomitant]
     Active Substance: GEMCITABINE HYDROCHLORIDE
     Route: 042
  5. LORAZEPAM. [Concomitant]
     Active Substance: LORAZEPAM
     Route: 042
  6. CLOBETASOL [Concomitant]
     Active Substance: CLOBETASOL
     Route: 065
  7. ELIDEL [Concomitant]
     Active Substance: PIMECROLIMUS
  8. MAGNESIUM OXIDE. [Concomitant]
     Active Substance: MAGNESIUM OXIDE
     Route: 065
  9. ATARAX [Concomitant]
     Active Substance: HYDROXYZINE\HYDROXYZINE HYDROCHLORIDE
     Dosage: 2-3 DAYS
     Route: 065
  10. CORDRAN [Concomitant]
     Active Substance: FLURANDRENOLIDE
     Route: 061
  11. EMEND [Concomitant]
     Active Substance: APREPITANT
     Route: 065
  12. LACTULOSE. [Concomitant]
     Active Substance: LACTULOSE
     Dosage: 15-30ML TWO-THREE TIMES A DAY
     Route: 048
  13. ROXICET [Concomitant]
     Active Substance: ACETAMINOPHEN\OXYCODONE HYDROCHLORIDE
  14. ERBITUX [Suspect]
     Active Substance: CETUXIMAB
     Route: 042
  15. DECADRON [Suspect]
     Active Substance: DEXAMETHASONE
     Indication: PRODUCT USED FOR UNKNOWN INDICATION
     Route: 042
  16. NEURONTIN [Concomitant]
     Active Substance: GABAPENTIN
     Route: 065
  17. PRAMOSONE [Concomitant]
     Active Substance: HYDROCORTISONE ACETATE\PRAMOXINE HYDROCHLORIDE
  18. ZITHROMAX [Concomitant]
     Active Substance: AZITHROMYCIN DIHYDRATE
     Dosage: DAY2
     Route: 048
  19. AVASTIN [Suspect]
     Active Substance: BEVACIZUMAB
     Indication: BRONCHIAL CARCINOMA
     Route: 042
     Dates: end: 200703
  20. TARCEVA [Suspect]
     Active Substance: ERLOTINIB HYDROCHLORIDE
     Indication: BRONCHIAL CARCINOMA
     Route: 048
     Dates: start: 200802, end: 200810
  21. TARCEVA [Suspect]
     Active Substance: ERLOTINIB HYDROCHLORIDE
     Indication: HAEMATOLOGICAL MALIGNANCY
     Route: 048
  22. CISPLATIN. [Concomitant]
     Active Substance: CISPLATIN
     Route: 042
  23. DESONIDE. [Concomitant]
     Active Substance: DESONIDE
  24. HYDROCORTISONE. [Concomitant]
     Active Substance: HYDROCORTISONE
     Route: 065
  25. NEULASTA [Concomitant]
     Active Substance: PEGFILGRASTIM
     Route: 058
     Dates: start: 20070626
  26. AMBIEN [Concomitant]
     Active Substance: ZOLPIDEM TARTRATE
     Dosage: AS REQUIRED
     Route: 065
  27. PRAMOXINE [Concomitant]
     Active Substance: PRAMOXINE
     Route: 061
  28. LOTRISONE [Concomitant]
     Active Substance: BETAMETHASONE DIPROPIONATE\CLOTRIMAZOLE
     Route: 061
  29. PRAMOXINE [Concomitant]
     Active Substance: PRAMOXINE
     Route: 061
  30. MIRALAX [Concomitant]
     Active Substance: POLYETHYLENE GLYCOL 3350
     Indication: CONSTIPATION
     Route: 065
  31. AVASTIN [Suspect]
     Active Substance: BEVACIZUMAB
     Route: 042
     Dates: start: 20060901, end: 20070108
  32. ERBITUX [Suspect]
     Active Substance: CETUXIMAB
     Indication: PRODUCT USED FOR UNKNOWN INDICATION
     Route: 065
     Dates: start: 200802, end: 200810
  33. CLEOCIN [Concomitant]
     Active Substance: CLINDAMYCIN PHOSPHATE
  34. ATIVAN [Concomitant]
     Active Substance: LORAZEPAM
     Route: 065
  35. CLARITIN [Concomitant]
     Active Substance: LORATADINE
     Indication: NASAL CONGESTION
     Route: 065
  36. LOTRISONE [Concomitant]
     Active Substance: BETAMETHASONE DIPROPIONATE\CLOTRIMAZOLE
     Route: 061
  37. AVASTIN [Suspect]
     Active Substance: BEVACIZUMAB
     Indication: HAEMATOLOGICAL MALIGNANCY
     Route: 042
     Dates: start: 20070202
  38. ERBITUX [Suspect]
     Active Substance: CETUXIMAB
     Route: 042
  39. TYLENOL [Concomitant]
     Active Substance: ACETAMINOPHEN
     Route: 065
  40. PERIACTIN [Concomitant]
     Active Substance: CYPROHEPTADINE HYDROCHLORIDE
     Indication: PRURITUS
     Dosage: AS REQUIRED
     Route: 048
  41. EMEND [Concomitant]
     Active Substance: APREPITANT
     Route: 065
  42. COLACE [Concomitant]
     Active Substance: DOCUSATE SODIUM
     Route: 065
  43. DULCOLAX TABLET [Concomitant]
     Route: 048
  44. ADVAIR HFA [Concomitant]
     Active Substance: FLUTICASONE PROPIONATE\SALMETEROL XINAFOATE
     Route: 065
  45. AVASTIN [Suspect]
     Active Substance: BEVACIZUMAB
     Route: 042
  46. ERBITUX [Suspect]
     Active Substance: CETUXIMAB
     Route: 042
  47. DECADRON [Suspect]
     Active Substance: DEXAMETHASONE
     Route: 042
  48. CISPLATIN. [Concomitant]
     Active Substance: CISPLATIN
     Route: 065
     Dates: start: 200706, end: 200801
  49. GRANISETRON [Concomitant]
     Active Substance: GRANISETRON
     Route: 042
  50. CYMBALTA [Concomitant]
     Active Substance: DULOXETINE HYDROCHLORIDE
  51. KEFLEX [Concomitant]
     Active Substance: CEPHALEXIN
     Route: 065
  52. BIAFINE [Concomitant]
     Active Substance: TROLAMINE
     Route: 065
  53. LEVAQUIN [Concomitant]
     Active Substance: LEVOFLOXACIN
     Route: 065
  54. ERBITUX [Suspect]
     Active Substance: CETUXIMAB
     Route: 042
  55. TAXOTERE [Concomitant]
     Active Substance: DOCETAXEL
     Route: 065
     Dates: end: 200703
  56. ZOMETA [Concomitant]
     Active Substance: ZOLEDRONIC ACID
     Route: 065
     Dates: start: 20070202
  57. BENADRYL [Concomitant]
     Active Substance: DIPHENHYDRAMINE HYDROCHLORIDE
     Route: 042
  58. MOTRIN [Concomitant]
     Active Substance: IBUPROFEN
  59. ROXICET [Concomitant]
     Active Substance: ACETAMINOPHEN\OXYCODONE HYDROCHLORIDE
     Indication: PAIN
     Dosage: 5-10ML
     Route: 065
  60. ZITHROMAX [Concomitant]
     Active Substance: AZITHROMYCIN DIHYDRATE
     Dosage: DAY1
     Route: 048
  61. MAGNESIUM OXIDE. [Concomitant]
     Active Substance: MAGNESIUM OXIDE
     Route: 065
  62. NAMENDA [Concomitant]
     Active Substance: MEMANTINE HYDROCHLORIDE
     Route: 065
  63. DECADRON [Suspect]
     Active Substance: DEXAMETHASONE
     Route: 048
  64. PROTONIX (UNITED STATES) [Concomitant]
  65. NAVELBINE [Concomitant]
     Active Substance: VINORELBINE TARTRATE
  66. OXYCODONE [Concomitant]
     Active Substance: OXYCODONE
  67. ROBITUSSIN DM [Concomitant]
     Active Substance: DEXTROMETHORPHAN HYDROBROMIDE\GUAIFENESIN
     Indication: COUGH
     Dosage: ONCE IN 4-6 HOURS
     Route: 065
  68. ATARAX [Concomitant]
     Active Substance: HYDROXYZINE\HYDROXYZINE HYDROCHLORIDE
     Dosage: 2-3 1 DAY
     Route: 065
  69. AMBIEN [Concomitant]
     Active Substance: ZOLPIDEM TARTRATE
     Dosage: 1-2 AS REQUIRED
     Route: 065
  70. TAGAMET [Concomitant]
     Active Substance: CIMETIDINE
  71. VALTREX [Concomitant]
     Active Substance: VALACYCLOVIR HYDROCHLORIDE
     Dosage: 2 TABLETS
     Route: 048

REACTIONS (51)
  - Death [Fatal]
  - Neuropathy peripheral [Unknown]
  - Disease progression [Unknown]
  - Nausea [Unknown]
  - Hypoaesthesia [Unknown]
  - Feeling hot [Recovered/Resolved]
  - Neutropenia [Unknown]
  - Metastases to lung [Unknown]
  - Dry throat [Unknown]
  - Eructation [Unknown]
  - Rash vesicular [Unknown]
  - Oesophagitis [Unknown]
  - Vomiting [Unknown]
  - Flushing [Unknown]
  - Pain [Recovered/Resolved]
  - Fatigue [Unknown]
  - Decreased appetite [Unknown]
  - Chest discomfort [Unknown]
  - Upper respiratory tract infection [Recovered/Resolved]
  - Bronchitis [Unknown]
  - Insomnia [Unknown]
  - Skin burning sensation [Unknown]
  - Constipation [Unknown]
  - Pleural effusion [Unknown]
  - Oropharyngeal pain [Unknown]
  - Asthenia [Unknown]
  - Rash erythematous [Unknown]
  - Skin lesion [Unknown]
  - Erythema [Unknown]
  - Heart rate increased [Unknown]
  - Dysphagia [Unknown]
  - Urticaria [Unknown]
  - Dermatitis acneiform [Unknown]
  - Headache [Unknown]
  - Productive cough [Unknown]
  - Breath sounds abnormal [Unknown]
  - Paraesthesia [Recovered/Resolved]
  - Mouth haemorrhage [Unknown]
  - Dry skin [Unknown]
  - Dry eye [Unknown]
  - Dyspnoea [Unknown]
  - Rash [Recovered/Resolved]
  - Pruritus [Unknown]
  - Skin hypertrophy [Unknown]
  - Tongue discolouration [Unknown]
  - Herpes zoster [Unknown]
  - Leukopenia [Unknown]
  - Sinusitis [Unknown]
  - Rash pustular [Unknown]
  - Chest X-ray abnormal [Unknown]
  - Abdominal discomfort [Unknown]

NARRATIVE: CASE EVENT DATE: 200802
